FAERS Safety Report 7278449-1 (Version None)
Quarter: 2011Q1

REPORT INFORMATION
  Report Type: 
  Country: None (occurrence: None)
  Receive Date: 20110202
  Receipt Date: 20110202
  Transmission Date: 20110831
  Serious: Yes (Hospitalization)
  Sender: FDA-Public Use
  Company Number: None

PATIENT
  Age: 69 Year
  Sex: Male
  Weight: 79 kg

DRUGS (5)
  1. AMLODIPINE [Concomitant]
  2. LISINOPRIL [Suspect]
     Indication: HYPERTENSION
     Dosage: 5 MG DAILY PO
     Route: 048
  3. METOPROLOL [Concomitant]
  4. OXYBUTYNIN [Concomitant]
  5. ALLOPURINOL [Concomitant]

REACTIONS (1)
  - ANGIOEDEMA [None]
